FAERS Safety Report 17847121 (Version 2)
Quarter: 2020Q2

REPORT INFORMATION
  Report Type: Spontaneous
  Country: FR (occurrence: FR)
  Receive Date: 20200601
  Receipt Date: 20200608
  Transmission Date: 20200714
  Serious: Yes (Hospitalization)
  Sender: FDA-Public Use
  Company Number: NVSC2020FR149902

PATIENT
  Age: 57 Year
  Sex: Female

DRUGS (4)
  1. CLOMIPRAMINE [Suspect]
     Active Substance: CLOMIPRAMINE
     Indication: INTENTIONAL OVERDOSE
     Dosage: 750 MG, ONCE/SINGLE
     Route: 048
     Dates: start: 20200217, end: 20200217
  2. SERESTA [Suspect]
     Active Substance: OXAZEPAM
     Indication: INTENTIONAL OVERDOSE
     Dosage: 1000 MG, ONCE/SINGLE
     Route: 048
     Dates: start: 20200217, end: 20200217
  3. PREGABALIN. [Suspect]
     Active Substance: PREGABALIN
     Indication: INTENTIONAL OVERDOSE
     Dosage: 1400 MG, ONCE/SINGLE
     Route: 048
     Dates: start: 20200217, end: 20200217
  4. ZOPICLONE [Suspect]
     Active Substance: ZOPICLONE
     Indication: INTENTIONAL OVERDOSE
     Dosage: 105 MG, ONCE/SINGLE
     Route: 048
     Dates: start: 20200217, end: 20200217

REACTIONS (3)
  - Anticholinergic syndrome [Recovering/Resolving]
  - Poisoning deliberate [Recovering/Resolving]
  - Coma [Recovered/Resolved]

NARRATIVE: CASE EVENT DATE: 20200217
